FAERS Safety Report 18046611 (Version 1)
Quarter: 2020Q3

REPORT INFORMATION
  Report Type: Report from Study
  Country: DE (occurrence: DE)
  Receive Date: 20200721
  Receipt Date: 20200721
  Transmission Date: 20201103
  Serious: Yes (Hospitalization)
  Sender: FDA-Public Use
  Company Number: DE-SUN PHARMACEUTICAL INDUSTRIES LTD-2020RR-253842

PATIENT
  Age: 64 Year
  Sex: Female
  Weight: 108 kg

DRUGS (13)
  1. NOVAMINSULFON 500 [Concomitant]
     Active Substance: METAMIZOLE
     Indication: PRODUCT USED FOR UNKNOWN INDICATION
     Dosage: AS REQUIRED
     Route: 065
  2. URO TABLINEN [Concomitant]
     Indication: PRODUCT USED FOR UNKNOWN INDICATION
     Dosage: 50 MG (50 MG,1 IN 1 D)
     Route: 065
  3. ILUMETRI 100 MG, INJEKTIONSL?SUNG [Suspect]
     Active Substance: TILDRAKIZUMAB
     Indication: PRODUCT USED FOR UNKNOWN INDICATION
     Dosage: STANDARD REGIMEN
     Route: 058
     Dates: start: 20191031
  4. TOLTERODIN 1A PHARMA 2 MG [Concomitant]
     Indication: PRODUCT USED FOR UNKNOWN INDICATION
     Dosage: 4 MG (2 MG,2 IN 1 D)
     Route: 065
  5. TELMISARTAN HEXAL [Concomitant]
     Indication: PRODUCT USED FOR UNKNOWN INDICATION
     Dosage: 40MG/12.5 MG DAILY
     Route: 065
  6. METEX FS [Concomitant]
     Indication: PRODUCT USED FOR UNKNOWN INDICATION
     Dosage: ONE INJECTION EVERY SATURDAY (17.5 MG,1 IN 1 WK)
     Route: 065
  7. FOLSAEURE 5 MG [Concomitant]
     Active Substance: FOLIC ACID
     Indication: PRODUCT USED FOR UNKNOWN INDICATION
     Dosage: EVERY SUNDAY (5 MG,1 IN 1 WK)
     Route: 065
  8. ASS TAD [Concomitant]
     Indication: PRODUCT USED FOR UNKNOWN INDICATION
     Dosage: 100 MG (100 MG,1 IN 1 D)
     Route: 065
  9. NOVAMINSULFON 500 [Concomitant]
     Active Substance: METAMIZOLE
     Dosage: MONDAY: 1 TABLET, TUESDAY: 2 TABLETS; WEDNESDAY: 1 TABLET; THURSDAY: 2 TABLETS; FRIDAY: 1 TABLET (50
     Route: 065
  10. CARVEDIGAMMA [Concomitant]
     Indication: PRODUCT USED FOR UNKNOWN INDICATION
     Dosage: 50 MG (25 MG,2 IN 1 D)
     Route: 065
  11. ALLOBETA 100 [Concomitant]
     Indication: PRODUCT USED FOR UNKNOWN INDICATION
     Dosage: 100 MG (100 MG,1 IN 1 D)
     Route: 065
  12. SERTRALINE HEXAL [Concomitant]
     Indication: PRODUCT USED FOR UNKNOWN INDICATION
     Dosage: 100 MG (100 MG,1 IN 1 D)
     Route: 065
  13. OMEPRAZOLE 1A PHARMA [Concomitant]
     Indication: PRODUCT USED FOR UNKNOWN INDICATION
     Dosage: 20 MG (20 MG,1 IN 1 D)
     Route: 065

REACTIONS (2)
  - Cardiac ventricular thrombosis [Not Recovered/Not Resolved]
  - Atrial fibrillation [Not Recovered/Not Resolved]

NARRATIVE: CASE EVENT DATE: 20200428
